FAERS Safety Report 18625558 (Version 1)
Quarter: 2020Q4

REPORT INFORMATION
  Report Type: Spontaneous
  Country: GB (occurrence: GB)
  Receive Date: 20201217
  Receipt Date: 20201217
  Transmission Date: 20210114
  Serious: Yes (Other)
  Sender: FDA-Public Use
  Company Number: GB-AUROBINDO-AUR-APL-2020-015793

PATIENT
  Age: 69 Year
  Sex: Female

DRUGS (15)
  1. DOCETAXEL. [Suspect]
     Active Substance: DOCETAXEL
     Dosage: 100 MILLIGRAM (NUMBER OF CYCLES: 6)
     Route: 042
     Dates: start: 20160125, end: 20160401
  2. PERTUZUMAB. [Suspect]
     Active Substance: PERTUZUMAB
     Indication: BREAST CANCER METASTATIC
     Dosage: 840 MILLIGRAM (LOADING DOSE), 3 WEEK
     Route: 042
     Dates: start: 20151230
  3. TRASTUZUMAB. [Suspect]
     Active Substance: TRASTUZUMAB
     Indication: BREAST CANCER METASTATIC
     Dosage: 525 MILLIGRAM (LOADING DOSE), 3 WEEK
     Route: 042
     Dates: start: 20151230, end: 20151230
  4. TRASTUZUMAB. [Suspect]
     Active Substance: TRASTUZUMAB
     Dosage: 394 MILLIGRAM (MAINTANANCE DOSE), 3 WEEK
     Route: 042
     Dates: start: 20160125, end: 20190426
  5. TRASTUZUMAB. [Suspect]
     Active Substance: TRASTUZUMAB
     Dosage: 378 MILLIGRAM (MAINTANANCE DOSE), 3 WEEK
     Route: 042
     Dates: start: 20191128, end: 20191219
  6. TRASTUZUMAB. [Suspect]
     Active Substance: TRASTUZUMAB
     Dosage: 504 MILLIGRAM, 3 WEEK
     Route: 042
     Dates: start: 20191219
  7. PERTUZUMAB. [Suspect]
     Active Substance: PERTUZUMAB
     Dosage: 420 MILLIGRAM (MAINTANANCE DOSE), 3 WEEK
     Route: 042
     Dates: start: 20160125
  8. RAMIPRIL. [Concomitant]
     Active Substance: RAMIPRIL
     Indication: EJECTION FRACTION DECREASED
     Dosage: 5 MILLIGRAM, ONCE A DAY
     Route: 048
     Dates: start: 201907
  9. ANASTROZOLE. [Suspect]
     Active Substance: ANASTROZOLE
     Dosage: 1 MILLIGRAM, ONCE A DAY
     Route: 048
     Dates: start: 20160525
  10. ESTRIOL [Concomitant]
     Active Substance: ESTRIOL
     Indication: PRODUCT USED FOR UNKNOWN INDICATION
     Dosage: UNK
     Route: 061
     Dates: start: 20160804
  11. ANASTROZOLE. [Suspect]
     Active Substance: ANASTROZOLE
     Indication: BREAST CANCER METASTATIC
     Dosage: 1 MILLIGRAM, ONCE A DAY
     Route: 048
     Dates: start: 20151123
  12. DOCETAXEL. [Suspect]
     Active Substance: DOCETAXEL
     Dosage: 96 MILLIGRAM (NUMBER OF CYCLES: 6)
     Route: 042
     Dates: start: 20160425
  13. DOCETAXEL. [Suspect]
     Active Substance: DOCETAXEL
     Indication: BREAST CANCER METASTATIC
     Dosage: 130 MILLIGRAM, EVERY WEEK
     Route: 042
     Dates: start: 20151231, end: 20151231
  14. RANITIDINE. [Concomitant]
     Active Substance: RANITIDINE
     Indication: GASTROOESOPHAGEAL REFLUX DISEASE
     Dosage: 150 MILLIGRAM, 0.5 DAY
     Route: 048
  15. LORATADINE. [Concomitant]
     Active Substance: LORATADINE
     Indication: PRODUCT USED FOR UNKNOWN INDICATION
     Dosage: 10 MILLIGRAM, ONCE A DAY
     Route: 048

REACTIONS (8)
  - Dermatitis [Not Recovered/Not Resolved]
  - Alopecia [Recovered/Resolved]
  - Neuropathy peripheral [Not Recovered/Not Resolved]
  - Stomatitis [Recovered/Resolved]
  - Arthralgia [Unknown]
  - Atrial fibrillation [Unknown]
  - Neutropenic sepsis [Recovered/Resolved]
  - Fatigue [Not Recovered/Not Resolved]

NARRATIVE: CASE EVENT DATE: 201601
